FAERS Safety Report 10050480 (Version 1)
Quarter: 2014Q2

REPORT INFORMATION
  Report Type: Spontaneous
  Country: US (occurrence: US)
  Receive Date: 20140401
  Receipt Date: 20140401
  Transmission Date: 20141212
  Serious: No
  Sender: FDA-Public Use
  Company Number: US-ASTRAZENECA-2013SE85526

PATIENT
  Age: 20 Year
  Sex: Male
  Weight: 95.3 kg

DRUGS (2)
  1. NEXIUM [Suspect]
     Indication: GASTROOESOPHAGEAL REFLUX DISEASE
     Route: 048
     Dates: end: 201306
  2. OTHER MEDICATIONS (UNSPECIFIED) [Concomitant]
     Dosage: UNKNOWN UNK

REACTIONS (4)
  - Gastrooesophageal reflux disease [Unknown]
  - Hypertension [Unknown]
  - Diabetes mellitus [Unknown]
  - Intentional product misuse [Unknown]
